FAERS Safety Report 20250411 (Version 3)
Quarter: 2023Q1

REPORT INFORMATION
  Report Type: Spontaneous
  Country: IT (occurrence: IT)
  Receive Date: 20211229
  Receipt Date: 20230330
  Transmission Date: 20230418
  Serious: Yes (Hospitalization, Other)
  Sender: FDA-Public Use
  Company Number: IT-009507513-2112ITA009004

PATIENT
  Sex: Female

DRUGS (2)
  1. PEMBROLIZUMAB [Suspect]
     Active Substance: PEMBROLIZUMAB
     Indication: Colon cancer metastatic
     Dosage: 200 MG, EVERY 3 WEEKS
     Dates: start: 2019
  2. PEMBROLIZUMAB [Suspect]
     Active Substance: PEMBROLIZUMAB
     Indication: Microsatellite instability cancer

REACTIONS (11)
  - Ascites [Unknown]
  - Hepatectomy [Recovered/Resolved]
  - Ill-defined disorder [Recovered/Resolved]
  - Large intestinal stenosis [Recovered/Resolved]
  - X-ray gastrointestinal tract abnormal [Recovered/Resolved]
  - Intestinal dilatation [Recovered/Resolved]
  - Tumour pseudoprogression [Recovered/Resolved]
  - Abdominal pain [Recovered/Resolved]
  - Nausea [Recovered/Resolved]
  - Vomiting [Recovered/Resolved]
  - Off label use [Unknown]

NARRATIVE: CASE EVENT DATE: 20190101
